FAERS Safety Report 15376050 (Version 2)
Quarter: 2019Q1

REPORT INFORMATION
  Report Type: Spontaneous
  Country: US (occurrence: US)
  Receive Date: 20180912
  Receipt Date: 20190101
  Transmission Date: 20190417
  Serious: No
  Sender: FDA-Public Use
  Company Number: US-ASTRAZENECA-2018SF08085

PATIENT
  Sex: Female

DRUGS (1)
  1. BYDUREON [Suspect]
     Active Substance: EXENATIDE
     Dosage: UNKNOWN
     Route: 065

REACTIONS (4)
  - Visual impairment [Unknown]
  - Dizziness [Unknown]
  - Wrong technique in device usage process [Unknown]
  - Underdose [Unknown]

NARRATIVE: CASE EVENT DATE: 20180823
